FAERS Safety Report 8170404-2 (Version None)
Quarter: 2012Q1

REPORT INFORMATION
  Report Type: 
  Country: None (occurrence: None)
  Receive Date: 20120228
  Receipt Date: 20120214
  Transmission Date: 20120608
  Serious: No
  Sender: FDA-Public Use
  Company Number: IT-ELI_LILLY_AND_COMPANY-IT201202003845

PATIENT
  Age: 72 Year
  Sex: Female

DRUGS (4)
  1. ZYPREXA [Suspect]
     Dosage: 2.5 MG, QD
     Route: 048
     Dates: start: 20111114, end: 20111201
  2. ZYPREXA [Suspect]
     Dosage: UNK
     Dates: start: 20120127
  3. DEPAKENE [Concomitant]
  4. TRIPTIZOL [Concomitant]
     Dosage: 15 MG, QD

REACTIONS (1)
  - EOSINOPHIL PERCENTAGE INCREASED [None]
